FAERS Safety Report 18641126 (Version 1)
Quarter: 2020Q4

REPORT INFORMATION
  Report Type: Spontaneous
  Country: SE (occurrence: SE)
  Receive Date: 20201221
  Receipt Date: 20201221
  Transmission Date: 20210114
  Serious: Yes (Hospitalization)
  Sender: FDA-Public Use
  Company Number: SE-TEVA-2020-SE-1859368

PATIENT
  Age: 44 Year
  Sex: Male

DRUGS (9)
  1. ETORICOXIB. [Concomitant]
     Active Substance: ETORICOXIB
  2. GABAPENTIN. [Concomitant]
     Active Substance: GABAPENTIN
  3. PREGABALIN. [Suspect]
     Active Substance: PREGABALIN
     Dosage: 150 MG
     Dates: start: 20201016, end: 20201020
  4. OXYNORM [Concomitant]
     Active Substance: OXYCODONE HYDROCHLORIDE
     Dosage: IF NECESSARY
  5. PARAFLEX [Concomitant]
     Active Substance: CHLORZOXAZONE
     Dosage: IF NECESSARY
  6. ALVEDON [Concomitant]
     Active Substance: ACETAMINOPHEN
  7. CILAXORAL [Concomitant]
     Active Substance: SODIUM PICOSULFATE
  8. PREGABALIN. [Suspect]
     Active Substance: PREGABALIN
     Indication: PAIN
     Dosage: 300 MG
     Dates: start: 20201021, end: 20201023
  9. DULOXETIN [Concomitant]
     Active Substance: DULOXETINE

REACTIONS (4)
  - Somnolence [Recovering/Resolving]
  - Loss of consciousness [Recovered/Resolved]
  - Altered state of consciousness [Recovering/Resolving]
  - Dizziness [Recovering/Resolving]

NARRATIVE: CASE EVENT DATE: 202010
